FAERS Safety Report 6916765-0 (Version None)
Quarter: 2010Q3

REPORT INFORMATION
  Report Type: 
  Country: None (occurrence: None)
  Receive Date: 20100810
  Receipt Date: 20100729
  Transmission Date: 20110219
  Serious: Yes (Disabling, Other)
  Sender: FDA-Public Use
  Company Number: US-PFIZER INC-2010044570

PATIENT
  Sex: Male

DRUGS (2)
  1. CHANTIX [Suspect]
     Indication: SMOKING CESSATION THERAPY
     Dosage: UNK
     Dates: start: 20071107, end: 20080101
  2. CEPHALEXIN [Concomitant]
     Dosage: UNK
     Dates: start: 20050101, end: 20080101

REACTIONS (8)
  - AGGRESSION [None]
  - ANGER [None]
  - DEPRESSION [None]
  - HOSTILITY [None]
  - MEMORY IMPAIRMENT [None]
  - MENTAL DISORDER [None]
  - MOOD ALTERED [None]
  - SUICIDE ATTEMPT [None]
